FAERS Safety Report 17006587 (Version 1)
Quarter: 2019Q4

REPORT INFORMATION
  Report Type: Spontaneous
  Country: US (occurrence: US)
  Receive Date: 20191107
  Receipt Date: 20191107
  Transmission Date: 20200122
  Serious: Yes (Disabling, Other)
  Sender: FDA-Public Use
  Company Number: US-JNJFOC-20191104219

PATIENT
  Sex: Male

DRUGS (1)
  1. INVOKANA [Suspect]
     Active Substance: CANAGLIFLOZIN
     Indication: DIABETES MELLITUS
     Route: 048
     Dates: start: 2014, end: 201610

REACTIONS (5)
  - Hand amputation [Unknown]
  - Diabetic ketoacidosis [Unknown]
  - Necrosis [Unknown]
  - Chronic kidney disease [Unknown]
  - Foot amputation [Unknown]

NARRATIVE: CASE EVENT DATE: 201610
